FAERS Safety Report 5527004-X (Version None)
Quarter: 2007Q4

REPORT INFORMATION
  Report Type: 
  Country: None (occurrence: None)
  Receive Date: 20071127
  Receipt Date: 20071113
  Transmission Date: 20080405
  Serious: Yes (Hospitalization)
  Sender: FDA-Public Use
  Company Number: US-RANBAXY-2007RR-11462

PATIENT

DRUGS (3)
  1. GABAPENTIN [Suspect]
  2. PREDNISOLONE [Suspect]
     Indication: EYE INFECTION
  3. HEPARIN [Suspect]
     Route: 042

REACTIONS (1)
  - ANAPHYLACTIC REACTION [None]
